FAERS Safety Report 23684750 (Version 2)
Quarter: 2024Q2

REPORT INFORMATION
  Report Type: Spontaneous
  Country: FI (occurrence: FI)
  Receive Date: 20240328
  Receipt Date: 20240422
  Transmission Date: 20240716
  Serious: Yes (Other)
  Sender: FDA-Public Use
  Company Number: FI-ELI_LILLY_AND_COMPANY-FI202403013791

PATIENT
  Age: 57 Year
  Sex: Female
  Weight: 99 kg

DRUGS (1)
  1. TALTZ [Suspect]
     Active Substance: IXEKIZUMAB
     Indication: Product used for unknown indication
     Dosage: 160 MG, SINGLE
     Route: 065
     Dates: start: 20240304, end: 20240304

REACTIONS (12)
  - Erysipelas [Unknown]
  - Somnolence [Unknown]
  - Paraesthesia [Unknown]
  - Tongue disorder [Recovered/Resolved]
  - Pharyngeal erythema [Unknown]
  - Dysphonia [Unknown]
  - C-reactive protein increased [Unknown]
  - Pharyngeal swelling [Unknown]
  - Oropharyngeal pain [Unknown]
  - Tonsillitis [Unknown]
  - Injection site mass [Recovered/Resolved]
  - Injection site erythema [Recovered/Resolved]

NARRATIVE: CASE EVENT DATE: 20240304
